FAERS Safety Report 12355230 (Version 1)
Quarter: 2016Q2

REPORT INFORMATION
  Report Type: Spontaneous
  Country: US (occurrence: None)
  Receive Date: 20160510
  Receipt Date: 20160510
  Transmission Date: 20160815
  Serious: No
  Sender: FDA-Public Use
  Company Number: None

PATIENT
  Age: 68 Year
  Sex: Female

DRUGS (1)
  1. IRBESARTAN. [Suspect]
     Active Substance: IRBESARTAN
     Indication: BLOOD PRESSURE MEASUREMENT
     Route: 048
     Dates: start: 20160422, end: 20160506

REACTIONS (5)
  - Dizziness [None]
  - Product quality issue [None]
  - Chest pain [None]
  - Asthenia [None]
  - Condition aggravated [None]

NARRATIVE: CASE EVENT DATE: 20160507
